FAERS Safety Report 17540080 (Version 1)
Quarter: 2020Q1

REPORT INFORMATION
  Report Type: Spontaneous
  Country: US (occurrence: US)
  Receive Date: 20200313
  Receipt Date: 20200313
  Transmission Date: 20200409
  Serious: No
  Sender: FDA-Public Use
  Company Number: US-SA-2020SA062887

PATIENT
  Age: 47 Year
  Sex: Female

DRUGS (26)
  1. BUDESONIDE. [Concomitant]
     Active Substance: BUDESONIDE
  2. DEXILANT [Concomitant]
     Active Substance: DEXLANSOPRAZOLE
  3. MUPIROCIN. [Concomitant]
     Active Substance: MUPIROCIN
  4. NAPROXEN. [Concomitant]
     Active Substance: NAPROXEN
  5. ULTRAM [Concomitant]
     Active Substance: TRAMADOL HYDROCHLORIDE
  6. SPIRIVA [Concomitant]
     Active Substance: TIOTROPIUM BROMIDE MONOHYDRATE
  7. VALTREX [Concomitant]
     Active Substance: VALACYCLOVIR HYDROCHLORIDE
  8. ZOFRAN [Concomitant]
     Active Substance: ONDANSETRON HYDROCHLORIDE
  9. TOBRAMYCIN. [Concomitant]
     Active Substance: TOBRAMYCIN
  10. JANUMET [Concomitant]
     Active Substance: METFORMIN HYDROCHLORIDE\SITAGLIPTIN PHOSPHATE
  11. LYRICA [Concomitant]
     Active Substance: PREGABALIN
     Dosage: UNK
  12. MECLIZINE [Concomitant]
     Active Substance: MECLIZINE HYDROCHLORIDE
  13. AZITHROMYCIN ANHYDROUS. [Concomitant]
     Active Substance: AZITHROMYCIN ANHYDROUS
  14. BREO ELLIPTA [Concomitant]
     Active Substance: FLUTICASONE FUROATE\VILANTEROL TRIFENATATE
  15. CAMBIA [Concomitant]
     Active Substance: DICLOFENAC POTASSIUM
  16. PROMETHAZINE [Concomitant]
     Active Substance: PROMETHAZINE HYDROCHLORIDE
  17. SIMVASTATIN. [Concomitant]
     Active Substance: SIMVASTATIN
  18. FAMOTIDINE. [Concomitant]
     Active Substance: FAMOTIDINE
  19. MONTELUKAST [Concomitant]
     Active Substance: MONTELUKAST SODIUM
  20. RANITIDINE. [Concomitant]
     Active Substance: RANITIDINE
  21. CYMBALTA [Concomitant]
     Active Substance: DULOXETINE HYDROCHLORIDE
  22. DUPIXENT [Suspect]
     Active Substance: DUPILUMAB
     Indication: ASTHMA
     Dosage: 1 DF, ONCE, QOW
     Route: 058
     Dates: start: 20191003
  23. AZELASTINE. [Concomitant]
     Active Substance: AZELASTINE HYDROCHLORIDE
  24. FIORICET [Concomitant]
     Active Substance: ACETAMINOPHEN\BUTALBITAL\CAFFEINE
  25. LOSARTAN POTASSIUM. [Concomitant]
     Active Substance: LOSARTAN POTASSIUM
  26. PROCHLORPERAZINE. [Concomitant]
     Active Substance: PROCHLORPERAZINE

REACTIONS (1)
  - Eczema [Not Recovered/Not Resolved]

NARRATIVE: CASE EVENT DATE: 20200304
